FAERS Safety Report 7217769-3 (Version None)
Quarter: 2011Q1

REPORT INFORMATION
  Report Type: 
  Country: None (occurrence: None)
  Receive Date: 20110110
  Receipt Date: 20101228
  Transmission Date: 20110831
  Serious: Yes (Hospitalization, Other)
  Sender: FDA-Public Use
  Company Number: PHHY2010JP80184

PATIENT
  Sex: Male
  Weight: 71 kg

DRUGS (3)
  1. TEGRETOL [Suspect]
     Indication: EPILEPSY
     Dosage: 300 MG, UNK
     Route: 048
     Dates: start: 20081101, end: 20090422
  2. FLIVAS [Suspect]
     Indication: BENIGN PROSTATIC HYPERPLASIA
     Dosage: 50 MG, UNK
     Route: 048
     Dates: start: 20050101, end: 20090422
  3. RIVOTRIL [Concomitant]
     Indication: EPILEPSY
     Dosage: 1 MG, UNK
     Route: 048
     Dates: start: 20070701

REACTIONS (4)
  - HYPOGAMMAGLOBULINAEMIA [None]
  - ORGANISING PNEUMONIA [None]
  - RESPIRATORY DISTRESS [None]
  - DYSPNOEA EXERTIONAL [None]
